FAERS Safety Report 9217809 (Version 2)
Quarter: 2013Q2

REPORT INFORMATION
  Report Type: Spontaneous
  Country: US (occurrence: US)
  Receive Date: 20130408
  Receipt Date: 20130415
  Transmission Date: 20140414
  Serious: Yes (Other)
  Sender: FDA-Public Use
  Company Number: US-BAXTER-2013BAX012690

PATIENT
  Sex: 0

DRUGS (1)
  1. SEVOFLURANE, USP [Suspect]
     Indication: INDUCTION OF ANAESTHESIA
     Route: 065

REACTIONS (2)
  - Unwanted awareness during anaesthesia [Unknown]
  - Device malfunction [Unknown]
